FAERS Safety Report 4467627-2 (Version None)
Quarter: 2004Q4

REPORT INFORMATION
  Report Type: 
  Country: None (occurrence: None)
  Receive Date: 20041004
  Receipt Date: 20041004
  Transmission Date: 20050328
  Serious: No
  Sender: FDA-Public Use
  Company Number: None

PATIENT
  Age: 75 Year
  Sex: Male

DRUGS (4)
  1. GEMZAR [Suspect]
     Indication: CARCINOMA
     Dates: start: 20040419
  2. ADVAIR DISCUS [Concomitant]
  3. ATROVENT [Concomitant]
  4. AVELOX [Concomitant]

REACTIONS (2)
  - DYSPNOEA [None]
  - ERYTHEMA [None]
